FAERS Safety Report 16972010 (Version 1)
Quarter: 2019Q4

REPORT INFORMATION
  Report Type: Spontaneous
  Country: FR (occurrence: FR)
  Receive Date: 20191029
  Receipt Date: 20191029
  Transmission Date: 20200122
  Serious: Yes (Disabling)
  Sender: FDA-Public Use
  Company Number: FR-ELI_LILLY_AND_COMPANY-FR201910010466

PATIENT
  Age: 65 Year
  Sex: Male
  Weight: 100 kg

DRUGS (2)
  1. CISPLATINE [Concomitant]
     Active Substance: CISPLATIN
     Dosage: 165 DOSAGE FORM, UNKNOWN
     Route: 042
     Dates: start: 20190806
  2. ALIMTA [Suspect]
     Active Substance: PEMETREXED DISODIUM
     Indication: NON-SMALL CELL LUNG CANCER
     Dosage: 1000 DOSAGE FORM, UNKNOWN
     Route: 042
     Dates: start: 20190806, end: 20190926

REACTIONS (2)
  - Oedema peripheral [Unknown]
  - Stasis dermatitis [Unknown]

NARRATIVE: CASE EVENT DATE: 20190810
